FAERS Safety Report 7154226-7 (Version None)
Quarter: 2010Q4

REPORT INFORMATION
  Report Type: 
  Country: None (occurrence: None)
  Receive Date: 20101213
  Receipt Date: 20101208
  Transmission Date: 20110411
  Serious: Yes (Other)
  Sender: FDA-Public Use
  Company Number: JP-PFIZER INC-2010167386

PATIENT
  Sex: Female

DRUGS (4)
  1. ZOLOFT [Suspect]
     Dosage: UNK
  2. LIPITOR [Suspect]
     Dosage: UNK
  3. ALINAMIN F [Concomitant]
     Dosage: UNK
  4. MAGNESIUM OXIDE [Concomitant]
     Dosage: UNK

REACTIONS (2)
  - AMNESIA [None]
  - SYNCOPE [None]
